FAERS Safety Report 10447546 (Version 2)
Quarter: 2014Q4

REPORT INFORMATION
  Report Type: Spontaneous
  Country: US (occurrence: US)
  Receive Date: 20140911
  Receipt Date: 20141028
  Transmission Date: 20150528
  Serious: Yes (Hospitalization)
  Sender: FDA-Public Use
  Company Number: US-BAYER-2014-135822

PATIENT
  Age: 36 Year
  Sex: Female
  Weight: 74 kg

DRUGS (2)
  1. ORTHO [ETHINYLESTRADIOL,NORETHISTERONE] [Concomitant]
     Route: 062
  2. MIRENA [Suspect]
     Active Substance: LEVONORGESTREL
     Indication: CONTRACEPTION
     Dosage: 20 MCG/24HR, CONT
     Route: 015
     Dates: start: 20080429, end: 20130705

REACTIONS (9)
  - Device misuse [None]
  - Emotional distress [None]
  - Complication of device removal [None]
  - Injury [None]
  - Device breakage [None]
  - Stress [None]
  - Device dislocation [None]
  - Pain [None]
  - Anxiety [None]

NARRATIVE: CASE EVENT DATE: 201304
